FAERS Safety Report 5901661-8 (Version None)
Quarter: 2008Q3

REPORT INFORMATION
  Report Type: 
  Country: None (occurrence: None)
  Receive Date: 20080929
  Receipt Date: 20080922
  Transmission Date: 20090109
  Serious: Yes (Hospitalization, Congenital Anomaly)
  Sender: FDA-Public Use
  Company Number: A0681075A

PATIENT
  Sex: Female
  Weight: 2.4 kg

DRUGS (5)
  1. PAXIL [Suspect]
     Indication: ANXIETY
     Dosage: 20MG PER DAY
     Dates: start: 20000101, end: 20060101
  2. HUMALOG [Concomitant]
     Dates: start: 19960101
  3. VITAMIN TAB [Concomitant]
     Dates: start: 20020401, end: 20021101
  4. TYLENOL (CAPLET) [Concomitant]
  5. DDAVP [Concomitant]

REACTIONS (7)
  - ATRIAL SEPTAL DEFECT [None]
  - ATRIOVENTRICULAR BLOCK COMPLETE [None]
  - CARDIAC MURMUR [None]
  - DRUG EXPOSURE DURING PREGNANCY [None]
  - PULMONARY VALVE STENOSIS CONGENITAL [None]
  - RIGHT VENTRICULAR DYSFUNCTION [None]
  - VENTRICULAR SEPTAL DEFECT [None]
